FAERS Safety Report 5888440-5 (Version None)
Quarter: 2008Q3

REPORT INFORMATION
  Report Type: 
  Country: None (occurrence: None)
  Receive Date: 20080918
  Receipt Date: 20080910
  Transmission Date: 20090109
  Serious: Yes (Hospitalization)
  Sender: FDA-Public Use
  Company Number: US-GENENTECH-267708

PATIENT
  Sex: Male
  Weight: 94.331 kg

DRUGS (2)
  1. BEVACIZUMAB [Suspect]
     Indication: NON-SMALL CELL LUNG CANCER
     Dosage: 1710 UNK, Q3W
     Route: 042
     Dates: start: 20080707
  2. ALIMTA [Suspect]
     Indication: NON-SMALL CELL LUNG CANCER
     Dosage: 1140 UNK, Q3W
     Route: 042
     Dates: start: 20080707

REACTIONS (1)
  - ATRIAL FIBRILLATION [None]
